FAERS Safety Report 16616318 (Version 1)
Quarter: 2019Q3

REPORT INFORMATION
  Report Type: Report from Study
  Country: US (occurrence: US)
  Receive Date: 20190723
  Receipt Date: 20190723
  Transmission Date: 20191004
  Serious: Yes (Other)
  Sender: FDA-Public Use
  Company Number: US-ROCHE-2359476

PATIENT

DRUGS (13)
  1. SOFOSBUVIR [Suspect]
     Active Substance: SOFOSBUVIR
     Indication: CHRONIC HEPATITIS C
     Route: 065
  2. OMBITASVIR;PARITAPREVIR;RITONAVIR [Suspect]
     Active Substance: OMBITASVIR\PARITAPREVIR\RITONAVIR
     Indication: CHRONIC HEPATITIS C
     Route: 065
  3. VELPATASVIR [Suspect]
     Active Substance: VELPATASVIR
     Indication: CHRONIC HEPATITIS C
     Route: 065
  4. GLECAPREVIR [Suspect]
     Active Substance: GLECAPREVIR
     Indication: CHRONIC HEPATITIS C
     Route: 065
  5. LEDIPASVIR [Suspect]
     Active Substance: LEDIPASVIR
     Indication: CHRONIC HEPATITIS C
     Route: 065
  6. RIBAVIRIN. [Suspect]
     Active Substance: RIBAVIRIN
     Indication: CHRONIC HEPATITIS C
     Route: 065
  7. DACLATASVIR. [Suspect]
     Active Substance: DACLATASVIR
     Indication: CHRONIC HEPATITIS C
     Route: 065
  8. GRAZOPREVIR. [Suspect]
     Active Substance: GRAZOPREVIR
     Indication: CHRONIC HEPATITIS C
     Route: 065
  9. ELBASVIR. [Suspect]
     Active Substance: ELBASVIR
     Indication: CHRONIC HEPATITIS C
     Route: 065
  10. SIMEPREVIR [Suspect]
     Active Substance: SIMEPREVIR
     Indication: CHRONIC HEPATITIS C
     Route: 065
  11. PIBRENTASVIR [Suspect]
     Active Substance: PIBRENTASVIR
     Indication: CHRONIC HEPATITIS C
     Route: 065
  12. DASABUVIR [Suspect]
     Active Substance: DASABUVIR
     Indication: CHRONIC HEPATITIS C
     Route: 065
  13. VOXILAPREVIR [Suspect]
     Active Substance: VOXILAPREVIR
     Indication: CHRONIC HEPATITIS C
     Route: 065

REACTIONS (23)
  - Hepatic failure [Unknown]
  - Vomiting [Unknown]
  - Anaemia [Unknown]
  - Decreased appetite [Unknown]
  - Fatigue [Unknown]
  - Nausea [Unknown]
  - Chills [Unknown]
  - Irritability [Unknown]
  - Pyrexia [Unknown]
  - Depression [Unknown]
  - Myalgia [Unknown]
  - Neutropenia [Unknown]
  - Dyspnoea [Unknown]
  - Pneumonitis [Unknown]
  - Pruritus [Unknown]
  - Headache [Unknown]
  - Skin reaction [Unknown]
  - Influenza like illness [Unknown]
  - Bradycardia [Unknown]
  - Diarrhoea [Unknown]
  - Insomnia [Unknown]
  - Jaundice [Unknown]
  - Pneumonia [Unknown]
